FAERS Safety Report 24108022 (Version 2)
Quarter: 2024Q3

REPORT INFORMATION
  Report Type: Spontaneous
  Country: BR (occurrence: BR)
  Receive Date: 20240718
  Receipt Date: 20240726
  Transmission Date: 20241017
  Serious: Yes (Life-Threatening, Hospitalization, Other)
  Sender: CELLTRION
  Company Number: BR-CELLTRION INC.-2024BR017187

PATIENT

DRUGS (3)
  1. TRUXIMA [Suspect]
     Active Substance: RITUXIMAB-ABBS
     Indication: Systemic scleroderma
     Dosage: 4 AMPOULES EVERY 6 MONTHS
     Route: 042
     Dates: start: 20230901
  2. ENTECAVIR [Concomitant]
     Active Substance: ENTECAVIR
     Indication: Hepatitis B
     Dosage: 1 PILL IN FASTING
     Route: 048
     Dates: start: 202305
  3. OMEPRAZOLE [Concomitant]
     Active Substance: OMEPRAZOLE
     Indication: Prophylaxis
     Dosage: 1 PILL IN FASTING
     Route: 048
     Dates: start: 202305

REACTIONS (7)
  - Muscular weakness [Recovering/Resolving]
  - Hepatitis B [Recovering/Resolving]
  - Latent tuberculosis [Recovered/Resolved]
  - Bacterial infection [Recovering/Resolving]
  - Product dispensing issue [Unknown]
  - Therapy interrupted [Unknown]
  - Off label use [Unknown]

NARRATIVE: CASE EVENT DATE: 20230101
